FAERS Safety Report 6670983 (Version 2)
Quarter: 2014Q3

REPORT INFORMATION
  Report Type: Spontaneous
  Country: US (occurrence: US)
  Receive Date: 20080618
  Receipt Date: 20140827
  Transmission Date: 20150326
  Serious: No
  Sender: FDA-Public Use
  Company Number: US-ASTRAZENECA-2008UW08337

PATIENT
  Age: 69 Year
  Sex: Female
  Weight: 49.9 kg

DRUGS (13)
  1. LISINOPRIL. [Suspect]
     Active Substance: LISINOPRIL
     Indication: HYPERTENSION
     Route: 048
  2. PREDNISONE. [Suspect]
     Active Substance: PREDNISONE
     Indication: GOUT
     Route: 065
  3. BABY ASA [Concomitant]
     Active Substance: ASPIRIN
  4. SYMBICORT [Suspect]
     Active Substance: BUDESONIDE\FORMOTEROL FUMARATE DIHYDRATE
     Indication: ASTHMA
     Dosage: 160/4.5 MCG 1 PUFF BID
     Route: 055
     Dates: start: 20080324
  5. LIPITOR [Concomitant]
     Active Substance: ATORVASTATIN CALCIUM
  6. CARVEDILOL. [Concomitant]
     Active Substance: CARVEDILOL
     Indication: HYPERTENSION
  7. SYMBICORT [Suspect]
     Active Substance: BUDESONIDE\FORMOTEROL FUMARATE DIHYDRATE
     Indication: ASTHMA
     Dosage: 160/4.5 MCG 2 PUFF BID
     Route: 055
  8. PEPCID [Concomitant]
     Active Substance: FAMOTIDINE
  9. ATENOLOL. [Concomitant]
     Active Substance: ATENOLOL
  10. SYMBICORT [Suspect]
     Active Substance: BUDESONIDE\FORMOTEROL FUMARATE DIHYDRATE
     Indication: EMPHYSEMA
     Dosage: 160/4.5 MCG 1 PUFF BID
     Route: 055
     Dates: start: 20080324
  11. CRESTOR [Suspect]
     Active Substance: ROSUVASTATIN CALCIUM
     Indication: BLOOD CHOLESTEROL ABNORMAL
     Route: 048
  12. DIOVAN HCT [Concomitant]
     Active Substance: HYDROCHLOROTHIAZIDE\VALSARTAN
  13. SYMBICORT [Suspect]
     Active Substance: BUDESONIDE\FORMOTEROL FUMARATE DIHYDRATE
     Indication: EMPHYSEMA
     Dosage: 160/4.5 MCG 2 PUFF BID
     Route: 055

REACTIONS (15)
  - Pneumonia [Unknown]
  - Off label use [Recovered/Resolved]
  - Somnambulism [Unknown]
  - Chronic obstructive pulmonary disease [Unknown]
  - Body height decreased [Unknown]
  - Weight decreased [Unknown]
  - Nausea [Unknown]
  - Defaecation urgency [Unknown]
  - Blood sodium decreased [Unknown]
  - Malaise [Unknown]
  - Drug hypersensitivity [Unknown]
  - Gastrooesophageal reflux disease [Unknown]
  - Influenza like illness [Unknown]
  - Dyspnoea [Unknown]
  - Abdominal discomfort [Unknown]
